FAERS Safety Report 21952197 (Version 1)
Quarter: 2023Q1

REPORT INFORMATION
  Report Type: Spontaneous
  Country: FR (occurrence: FR)
  Receive Date: 20230203
  Receipt Date: 20230203
  Transmission Date: 20230418
  Serious: Yes (Hospitalization, Other)
  Sender: FDA-Public Use
  Company Number: FR-ORGANON-O2301FRA002854

PATIENT
  Age: 28 Year
  Sex: Female

DRUGS (1)
  1. NEXPLANON [Suspect]
     Active Substance: ETONOGESTREL
     Indication: Contraception
     Dosage: 1 IMPLANT, IN THE LEFT BRACHIAL
     Route: 059

REACTIONS (5)
  - Device embolisation [Unknown]
  - Uterine artery embolisation [Unknown]
  - Pelvic pain [Unknown]
  - Complication associated with device [Recovered/Resolved]
  - Complication of device removal [Unknown]

NARRATIVE: CASE EVENT DATE: 20200901
